FAERS Safety Report 5161297-6 (Version None)
Quarter: 2006Q4

REPORT INFORMATION
  Report Type: 
  Country: None (occurrence: None)
  Receive Date: 20061130
  Receipt Date: 20061016
  Transmission Date: 20070319
  Serious: No
  Sender: FDA-Public Use
  Company Number: US-BRISTOL-MYERS SQUIBB COMPANY-13542170

PATIENT
  Age: 75 Year
  Sex: Male
  Weight: 61 kg

DRUGS (8)
  1. ERBITUX [Suspect]
     Indication: RECTAL CANCER
     Route: 042
     Dates: start: 20061002
  2. IRINOTECAN HCL [Concomitant]
  3. ZOCOR [Concomitant]
  4. ACTOS [Concomitant]
  5. SYNTHROID [Concomitant]
  6. VITAMIN CAP [Concomitant]
  7. BENADRYL [Concomitant]
     Indication: PREMEDICATION
  8. DECADRON [Concomitant]
     Indication: PREMEDICATION

REACTIONS (1)
  - RASH [None]
